FAERS Safety Report 6752018-1 (Version None)
Quarter: 2010Q2

REPORT INFORMATION
  Report Type: 
  Country: None (occurrence: None)
  Receive Date: 20100602
  Receipt Date: 20100525
  Transmission Date: 20101027
  Serious: Yes (Hospitalization)
  Sender: FDA-Public Use
  Company Number: GB-MERCK-1005GBR00090

PATIENT
  Age: 65 Year
  Sex: Female
  Weight: 115 kg

DRUGS (8)
  1. ZOCOR [Suspect]
     Route: 048
  2. ASPIRIN [Suspect]
     Route: 065
  3. ATENOLOL [Suspect]
     Route: 065
  4. CARBIMAZOLE [Suspect]
     Route: 065
  5. INSULIN, BIPHASIC ISOPHANE [INJECTION] [Suspect]
     Route: 065
  6. METFORMIN [Suspect]
     Route: 065
  7. PAROXETINE [Suspect]
     Route: 065
  8. RAMIPRIL [Suspect]
     Route: 065

REACTIONS (2)
  - HYPERPARATHYROIDISM PRIMARY [None]
  - PARATHYROID TUMOUR BENIGN [None]
